FAERS Safety Report 21080460 (Version 2)
Quarter: 2022Q3

REPORT INFORMATION
  Report Type: Spontaneous
  Country: US (occurrence: None)
  Receive Date: 20220714
  Receipt Date: 20220815
  Transmission Date: 20221027
  Serious: Yes (Other)
  Sender: FDA-Public Use
  Company Number: US-ROCHE-3133657

PATIENT
  Sex: Male

DRUGS (2)
  1. HEMLIBRA [Suspect]
     Active Substance: EMICIZUMAB-KXWH
     Indication: Factor VIII deficiency
     Dosage: DOSE , FREQUENCY: 2.33 ML (349.5 MG) (STRENGTH: 150 MG/ML)
     Route: 058
     Dates: start: 20220707
  2. HEMLIBRA [Suspect]
     Active Substance: EMICIZUMAB-KXWH
     Dosage: DOSE , FREQUENCY: 2.33 ML (349.5 MG) (STRENGTH: 60 MG/ 0.4 ML)
     Route: 058
     Dates: start: 20220707

REACTIONS (1)
  - Haemarthrosis [Not Recovered/Not Resolved]
